FAERS Safety Report 5607292-1 (Version None)
Quarter: 2008Q1

REPORT INFORMATION
  Report Type: 
  Country: None (occurrence: None)
  Receive Date: 20080130
  Receipt Date: 20080123
  Transmission Date: 20080703
  Serious: Yes (Life-Threatening, Hospitalization)
  Sender: FDA-Public Use
  Company Number: JP-JNJFOC-20080102073

PATIENT
  Sex: Male
  Weight: 84 kg

DRUGS (4)
  1. REMICADE [Suspect]
     Indication: COLITIS ULCERATIVE
     Route: 042
  2. PENTASA [Concomitant]
     Indication: COLITIS ULCERATIVE
     Route: 048
  3. PREDNISONE TAB [Concomitant]
     Indication: COLITIS ULCERATIVE
     Route: 048
  4. PANSPORIN [Concomitant]
     Indication: COLITIS ULCERATIVE
     Route: 042

REACTIONS (2)
  - GASTROINTESTINAL DISORDER [None]
  - WHITE BLOOD CELL COUNT DECREASED [None]
